FAERS Safety Report 7756586-2 (Version None)
Quarter: 2011Q3

REPORT INFORMATION
  Report Type: 
  Country: None (occurrence: None)
  Receive Date: 20110916
  Receipt Date: 20110905
  Transmission Date: 20111222
  Serious: Yes (Other)
  Sender: FDA-Public Use
  Company Number: PHFR2011GB02936

PATIENT
  Sex: Male

DRUGS (5)
  1. CLOZAPINE [Suspect]
     Dosage: 300 MG, ONCE/SINGLE
     Route: 048
     Dates: start: 20110505
  2. HALOPERIDOL [Concomitant]
     Indication: ACUTE PSYCHOSIS
     Dosage: 1.5 MG/ DAY
     Route: 048
     Dates: start: 20100101
  3. CLOZAPINE [Suspect]
     Dosage: 100 MG, MORNING AND 400 MG, NOCTE
     Route: 048
  4. CLOZAPINE [Suspect]
     Indication: ACUTE PSYCHOSIS
     Route: 048
     Dates: start: 20090511, end: 20110430
  5. DEPAKOTE [Concomitant]
     Indication: ACUTE PSYCHOSIS
     Dosage: 250 MG, MORNING AND 750 MG, NOCTE
     Route: 048
     Dates: start: 20080101

REACTIONS (4)
  - SEDATION [None]
  - SOMNOLENCE [None]
  - INCORRECT DOSE ADMINISTERED [None]
  - WEIGHT INCREASED [None]
